FAERS Safety Report 8245088-5 (Version None)
Quarter: 2012Q1

REPORT INFORMATION
  Report Type: 
  Country: None (occurrence: None)
  Receive Date: 20120329
  Receipt Date: 20120323
  Transmission Date: 20120608
  Serious: Yes (Hospitalization)
  Sender: FDA-Public Use
  Company Number: US-GLAXOSMITHKLINE-A0971015A

PATIENT
  Age: 52 Year
  Sex: Male

DRUGS (1)
  1. ARIXTRA [Suspect]
     Indication: EMBOLISM VENOUS
     Dosage: 10MG PER DAY
     Route: 058
     Dates: start: 20120307

REACTIONS (2)
  - DEEP VEIN THROMBOSIS [None]
  - OVERDOSE [None]
